FAERS Safety Report 14549800 (Version 6)
Quarter: 2024Q2

REPORT INFORMATION
  Report Type: Report from Study
  Country: US (occurrence: US)
  Receive Date: 20180219
  Receipt Date: 20240621
  Transmission Date: 20240716
  Serious: No
  Sender: FDA-Public Use
  Company Number: US-ACADIA PHARMACEUTICALS INC.-ACA-2017-006156

PATIENT
  Sex: Male

DRUGS (13)
  1. NUPLAZID [Suspect]
     Active Substance: PIMAVANSERIN TARTRATE
     Indication: Parkinson^s disease
     Dosage: 10 MILLIGRAM, QD
     Route: 048
     Dates: start: 202205
  2. NUPLAZID [Suspect]
     Active Substance: PIMAVANSERIN TARTRATE
     Indication: Psychotic disorder
     Dosage: 10 MILLIGRAM, QD
     Route: 048
  3. NUPLAZID [Suspect]
     Active Substance: PIMAVANSERIN TARTRATE
     Indication: Parkinson^s disease psychosis
     Dosage: 34 MG, QD
     Route: 048
     Dates: start: 20171006
  4. NUPLAZID [Suspect]
     Active Substance: PIMAVANSERIN TARTRATE
     Indication: Hallucination
  5. NUPLAZID [Suspect]
     Active Substance: PIMAVANSERIN TARTRATE
     Indication: Delusion
  6. DUOPA [Concomitant]
     Active Substance: CARBIDOPA\LEVODOPA
  7. ONGENTYS [Concomitant]
     Active Substance: OPICAPONE
  8. COENZYME Q10 [Concomitant]
     Active Substance: DIETARY SUPPLEMENT\UBIDECARENONE
  9. VITAMIN D NOS [Concomitant]
     Active Substance: CHOLECALCIFEROL\ERGOCALCIFEROL
  10. IBUPROFEN [Concomitant]
     Active Substance: IBUPROFEN
  11. CARBIDOPA LEVODOPA [Concomitant]
     Active Substance: CARBIDOPA\LEVODOPA
  12. VITAMINS NOS [Concomitant]
     Active Substance: VITAMINS
  13. CARBIDOPA [Concomitant]
     Active Substance: CARBIDOPA

REACTIONS (10)
  - Gastrointestinal tube insertion [Recovered/Resolved]
  - Complication associated with device [Unknown]
  - Product dose omission issue [Recovered/Resolved]
  - COVID-19 [Recovered/Resolved]
  - Device occlusion [Unknown]
  - Complication associated with device [Unknown]
  - Hallucination [Recovered/Resolved]
  - Fall [Recovered/Resolved]
  - Hallucination [Unknown]
  - Therapeutic product effect decreased [Unknown]
